FAERS Safety Report 6636090-5 (Version None)
Quarter: 2010Q1

REPORT INFORMATION
  Report Type: 
  Country: None (occurrence: None)
  Receive Date: 20100310
  Receipt Date: 20100225
  Transmission Date: 20100710
  Serious: Yes (Other)
  Sender: FDA-Public Use
  Company Number: DSJ-2010-03211

PATIENT
  Age: 77 Year
  Sex: Female

DRUGS (11)
  1. BENICAR [Suspect]
     Indication: HYPERTENSION
     Dosage: 40 MG ( 1 IN 1 D), PER ORAL
     Route: 048
     Dates: start: 20100201
  2. BROMOPRIDE (BROMOPROIDE) (BROMOPRIDE) [Concomitant]
  3. ALPRAZOLAM [Concomitant]
  4. OXCARBAZEPINE (OXCARBAZEPINE) (OXCARBAZEPINE) [Concomitant]
  5. ISOSORBIDE (ISOSORBIDE) (ISOSORBIDE) [Concomitant]
  6. PANTOPRAZOLE SODIUM (PANTOPRAZOLE SODIUM) (PANTOPRAZOLE SODIUM) [Concomitant]
  7. CILOSTAZOL (CILOSTAZOL) (CILOSTAZOL) [Concomitant]
  8. SITAGLIPTIN [Concomitant]
  9. MEMANTINE (MEMANTINE) (MEMANTINE) [Concomitant]
  10. DIVALPROEX SODIUM (VALPROATE SEMISODIUM) (VALPROATE SEMISODIUM) [Concomitant]
  11. LERCANIDIPINE (LERCANIDIPINE) (LERCANIDIPINE) [Concomitant]

REACTIONS (5)
  - BLOOD PRESSURE FLUCTUATION [None]
  - DRUG INEFFECTIVE [None]
  - HYPERHIDROSIS [None]
  - HYPOTENSION [None]
  - PALLOR [None]
